FAERS Safety Report 19505941 (Version 1)
Quarter: 2021Q3

REPORT INFORMATION
  Report Type: Spontaneous
  Country: US (occurrence: US)
  Receive Date: 20210708
  Receipt Date: 20210708
  Transmission Date: 20211014
  Serious: Yes (Hospitalization)
  Sender: FDA-Public Use
  Company Number: US-DRREDDYS-SPO/USA/21/0137250

PATIENT
  Age: 80 Year
  Sex: Male
  Weight: 99 kg

DRUGS (1)
  1. RANITIDINE CAPSULES 300 MG [Suspect]
     Active Substance: RANITIDINE
     Indication: FLATULENCE
     Dates: start: 201907, end: 201911

REACTIONS (2)
  - General physical health deterioration [Unknown]
  - Renal disorder [Unknown]
